FAERS Safety Report 9521213 (Version 2)
Quarter: 2013Q3

REPORT INFORMATION
  Report Type: Spontaneous
  Country: NL (occurrence: NL)
  Receive Date: 20130913
  Receipt Date: 20130913
  Transmission Date: 20140515
  Serious: Yes (Disabling)
  Sender: FDA-Public Use
  Company Number: NL-ASTRAZENECA-2011SE37756

PATIENT
  Age: 21843 Day
  Sex: Male
  Weight: 112 kg

DRUGS (1)
  1. SEROQUEL XR [Suspect]
     Indication: DEPRESSION
     Route: 048
     Dates: start: 20100708

REACTIONS (5)
  - Tinnitus [Not Recovered/Not Resolved]
  - Confusional state [Not Recovered/Not Resolved]
  - Stomatitis [Not Recovered/Not Resolved]
  - Bronchitis [Not Recovered/Not Resolved]
  - Fatigue [Not Recovered/Not Resolved]
